FAERS Safety Report 8534796-4 (Version None)
Quarter: 2012Q3

REPORT INFORMATION
  Report Type: 
  Country: None (occurrence: None)
  Receive Date: 20120724
  Receipt Date: 20120713
  Transmission Date: 20120928
  Serious: Yes (Life-Threatening, Hospitalization)
  Sender: FDA-Public Use
  Company Number: CA-BAXTER-2012BAX011278

PATIENT
  Sex: Male

DRUGS (8)
  1. EXTRANEAL [Suspect]
     Indication: PERITONEAL DIALYSIS
     Route: 033
  2. DIANEAL [Suspect]
  3. DIANEAL [Suspect]
  4. DIANEAL [Suspect]
     Indication: PERITONEAL DIALYSIS
     Route: 033
  5. DIANEAL [Suspect]
  6. EXTRANEAL [Suspect]
  7. DIANEAL [Suspect]
     Indication: PERITONEAL DIALYSIS
     Route: 033
  8. DIANEAL [Suspect]

REACTIONS (4)
  - APPARENT DEATH [None]
  - FATIGUE [None]
  - DIAPHRAGMATIC HERNIA [None]
  - DYSPNOEA [None]
